FAERS Safety Report 21664965 (Version 1)
Quarter: 2022Q4

REPORT INFORMATION
  Report Type: Report from Study
  Country: US (occurrence: US)
  Receive Date: 20221130
  Receipt Date: 20221130
  Transmission Date: 20230112
  Serious: No
  Sender: FDA-Public Use
  Company Number: US-ABBVIE-4184196

PATIENT
  Sex: Male

DRUGS (1)
  1. SKYRIZI [Suspect]
     Active Substance: RISANKIZUMAB-RZAA
     Indication: Psoriasis
     Dosage: 150 MG/ML
     Route: 058
     Dates: start: 20210612

REACTIONS (3)
  - COVID-19 [Unknown]
  - Ear pruritus [Recovering/Resolving]
  - Pruritus [Recovering/Resolving]
